FAERS Safety Report 5611504-8 (Version None)
Quarter: 2008Q1

REPORT INFORMATION
  Report Type: 
  Country: None (occurrence: None)
  Receive Date: 20080201
  Receipt Date: 20080118
  Transmission Date: 20080703
  Serious: Yes (Hospitalization)
  Sender: FDA-Public Use
  Company Number: JP-ROCHE-537825

PATIENT
  Age: 32 Month
  Sex: Female
  Weight: 14 kg

DRUGS (1)
  1. TAMIFLU [Suspect]
     Route: 048

REACTIONS (3)
  - ABNORMAL BEHAVIOUR [None]
  - CONVULSION [None]
  - ENCEPHALOPATHY [None]
